FAERS Safety Report 11717413 (Version 3)
Quarter: 2016Q1

REPORT INFORMATION
  Report Type: Report from Study
  Country: US (occurrence: US)
  Receive Date: 20151110
  Receipt Date: 20160129
  Transmission Date: 20160525
  Serious: No
  Sender: FDA-Public Use
  Company Number: US-AMGEN-USASL2015117213

PATIENT
  Age: 43 Year
  Sex: Female

DRUGS (1)
  1. ENBREL [Suspect]
     Active Substance: ETANERCEPT
     Indication: RHEUMATOID ARTHRITIS
     Dosage: 50 MG, QWK
     Route: 065
     Dates: start: 20140603

REACTIONS (6)
  - Malaise [Recovering/Resolving]
  - Oropharyngeal pain [Unknown]
  - Respiratory tract congestion [Unknown]
  - Secretion discharge [Unknown]
  - Bronchitis [Recovering/Resolving]
  - Cough [Unknown]
